FAERS Safety Report 4394094-X (Version None)
Quarter: 2004Q3

REPORT INFORMATION
  Report Type: 
  Country: None (occurrence: None)
  Receive Date: 20040708
  Receipt Date: 20040708
  Transmission Date: 20050211
  Serious: Yes (Death)
  Sender: FDA-Public Use
  Company Number: None

PATIENT
  Age: 10 Day
  Sex: Male
  Weight: 0.555 kg

DRUGS (14)
  1. IBUPROFEN LYSINE (10MG/ML) COURSE #1 [Suspect]
     Indication: PATENT DUCTUS ARTERIOSUS
     Dosage: 5.4 MG IV X 1 2.7 MG IV X 2
     Route: 042
     Dates: start: 20040608
  2. IBUPROFEN LYSINE (10MG/ML) COURSE #1 [Suspect]
     Indication: PATENT DUCTUS ARTERIOSUS
     Dosage: 5.4 MG IV X 1 2.7 MG IV X 2
     Route: 042
     Dates: start: 20040609
  3. IBUPROFEN LYSINE (10MG/ML) COURSE #1 [Suspect]
     Indication: PATENT DUCTUS ARTERIOSUS
     Dosage: 5.4 MG IV X 1 2.7 MG IV X 2
     Route: 042
     Dates: start: 20040610
  4. AMPICILLIN [Concomitant]
  5. GENTAMYCIN SULFATE [Concomitant]
  6. PHENOBARBITAL TAB [Concomitant]
  7. DOPAMINE HCL [Concomitant]
  8. BACITRACIN [Concomitant]
  9. VERSED [Concomitant]
  10. PEPCID [Concomitant]
  11. AMPHOTERICIN B [Concomitant]
  12. DOBUTAMINE [Concomitant]
  13. MORPHINE [Concomitant]
  14. ATIVAN [Concomitant]

REACTIONS (8)
  - ANURIA [None]
  - CONDITION AGGRAVATED [None]
  - CONVULSION NEONATAL [None]
  - FUNGAL SEPSIS [None]
  - GASTROINTESTINAL PERFORATION [None]
  - INTRAVENTRICULAR HAEMORRHAGE NEONATAL [None]
  - NECROTISING ENTEROCOLITIS NEONATAL [None]
  - NEONATAL DISORDER [None]
